FAERS Safety Report 9530224 (Version 1)
Quarter: 2013Q3

REPORT INFORMATION
  Report Type: Spontaneous
  Country: CA (occurrence: CA)
  Receive Date: 20130917
  Receipt Date: 20130917
  Transmission Date: 20140515
  Serious: Yes (Other)
  Sender: FDA-Public Use
  Company Number: CA-ROCHE-1275904

PATIENT
  Age: 66 Year
  Sex: Female
  Weight: 63.56 kg

DRUGS (4)
  1. AVASTIN [Suspect]
     Indication: PRODUCT USED FOR UNKNOWN INDICATION
     Dosage: FORM:SOLUTION INTRAVENOUS
     Route: 031
  2. APO-SIMVASTATIN [Concomitant]
     Route: 065
  3. APO-PROPRANOLOL [Concomitant]
     Route: 065
  4. D-TABS [Concomitant]
     Dosage: 10000 UNIT
     Route: 065

REACTIONS (3)
  - Headache [Not Recovered/Not Resolved]
  - Palpitations [Not Recovered/Not Resolved]
  - Scleral haemorrhage [Not Recovered/Not Resolved]
